FAERS Safety Report 16867924 (Version 1)
Quarter: 2019Q3

REPORT INFORMATION
  Report Type: Spontaneous
  Country: PE (occurrence: PE)
  Receive Date: 20190930
  Receipt Date: 20190930
  Transmission Date: 20191005
  Serious: Yes (Other)
  Sender: FDA-Public Use
  Company Number: PHHY2019PE214736

PATIENT
  Age: 75 Year
  Sex: Male
  Weight: 80 kg

DRUGS (1)
  1. ENTRESTO [Suspect]
     Active Substance: SACUBITRIL\VALSARTAN
     Indication: CARDIAC FAILURE CHRONIC
     Dosage: 50 MG, BID
     Route: 048
     Dates: start: 201909, end: 20190910

REACTIONS (5)
  - Blood creatinine increased [Unknown]
  - Ejection fraction decreased [Unknown]
  - Acute kidney injury [Unknown]
  - Condition aggravated [Not Recovered/Not Resolved]
  - Hypotension [Unknown]
